FAERS Safety Report 7630158-2 (Version None)
Quarter: 2011Q3

REPORT INFORMATION
  Report Type: 
  Country: None (occurrence: None)
  Receive Date: 20110722
  Receipt Date: 20110714
  Transmission Date: 20111222
  Serious: Yes (Disabling, Other)
  Sender: FDA-Public Use
  Company Number: JP-AMGEN-JPNCT2011037302

PATIENT
  Age: 73 Year
  Sex: Male
  Weight: 35 kg

DRUGS (14)
  1. DIART [Concomitant]
     Route: 048
  2. HIRUDOID [Concomitant]
     Dosage: UNK
     Route: 062
  3. PANITUMUMAB [Suspect]
     Indication: COLORECTAL CANCER
     Dosage: 6 MG/KG, Q2WK
     Route: 041
     Dates: start: 20100901, end: 20100901
  4. IRINOTECAN HCL [Suspect]
     Indication: COLORECTAL CANCER
     Route: 041
     Dates: start: 20100901, end: 20100930
  5. FLUOROURACIL [Suspect]
     Route: 041
     Dates: start: 20100901, end: 20100930
  6. RAMELTEON [Concomitant]
     Dosage: UNK
     Route: 048
  7. PANITUMUMAB [Suspect]
     Dosage: 6 MG/KG, Q2WK
     Route: 041
     Dates: start: 20100928, end: 20100928
  8. LEUCOVORIN CALCIUM [Suspect]
     Indication: COLORECTAL CANCER
     Route: 041
     Dates: start: 20100901, end: 20100930
  9. EMEND [Concomitant]
     Dosage: UNK
     Route: 048
  10. LOCOID [Concomitant]
     Dosage: UNK
     Route: 062
  11. ANTEBATE [Concomitant]
     Dosage: UNK
     Route: 062
  12. WARFARIN SODIUM [Concomitant]
     Route: 048
  13. FLUOROURACIL [Suspect]
     Indication: COLORECTAL CANCER
     Route: 040
     Dates: start: 20100901, end: 20100930
  14. DECADRON [Concomitant]
     Dosage: UNK
     Route: 048

REACTIONS (1)
  - CEREBRAL INFARCTION [None]
